FAERS Safety Report 4359277-3 (Version None)
Quarter: 2004Q2

REPORT INFORMATION
  Report Type: 
  Country: None (occurrence: None)
  Receive Date: 20040512
  Receipt Date: 20040505
  Transmission Date: 20050107
  Serious: Yes (Death)
  Sender: FDA-Public Use
  Company Number: 2004209629US

PATIENT
  Age: 43 Year
  Sex: Male

DRUGS (3)
  1. XANAX [Suspect]
  2. ETHANOL(ETHANOL) [Suspect]
  3. COCAINE(COCAINE) [Suspect]

REACTIONS (1)
  - DRUG TOXICITY [None]
